FAERS Safety Report 23068626 (Version 1)
Quarter: 2023Q4

REPORT INFORMATION
  Report Type: Spontaneous
  Country: US (occurrence: None)
  Receive Date: 20231014
  Receipt Date: 20231014
  Transmission Date: 20240110
  Serious: Yes (Other)
  Sender: FDA-Public Use
  Company Number: None

PATIENT
  Age: 34 Year
  Sex: Female
  Weight: 108 kg

DRUGS (1)
  1. NEXPLANON [Suspect]
     Active Substance: ETONOGESTREL
     Indication: Contraception
     Dates: start: 20130513, end: 20211012

REACTIONS (3)
  - Amenorrhoea [None]
  - Anti-Muellerian hormone level decreased [None]
  - Infertility [None]

NARRATIVE: CASE EVENT DATE: 20231010
